FAERS Safety Report 21662350 (Version 2)
Quarter: 2022Q4

REPORT INFORMATION
  Report Type: Spontaneous
  Country: US (occurrence: US)
  Receive Date: 20221130
  Receipt Date: 20221205
  Transmission Date: 20230113
  Serious: No
  Sender: FDA-Public Use
  Company Number: US-002147023-NVSC2022US266161

PATIENT
  Sex: Female

DRUGS (1)
  1. MEKINIST [Suspect]
     Active Substance: TRAMETINIB DIMETHYL SULFOXIDE
     Indication: Ovarian cancer
     Dosage: 2 MG, QD (AT 7AM)
     Route: 048
     Dates: start: 202211

REACTIONS (4)
  - Dry mouth [Unknown]
  - Dry eye [Unknown]
  - Acne [Unknown]
  - Product use in unapproved indication [Unknown]
